FAERS Safety Report 4446495-9 (Version None)
Quarter: 2004Q3

REPORT INFORMATION
  Report Type: 
  Country: None (occurrence: None)
  Receive Date: 20040902
  Receipt Date: 20040819
  Transmission Date: 20050211
  Serious: Yes (Hospitalization)
  Sender: FDA-Public Use
  Company Number: 2004IC000843

PATIENT
  Age: 66 Year
  Sex: Male

DRUGS (11)
  1. TASMAR [Suspect]
     Indication: PARKINSONISM
     Dosage: ORAL
     Route: 048
     Dates: start: 20031015
  2. MADOPARK (LEVODOPA/BENSERAZIDE HYDROCHLORIDE) [Suspect]
     Indication: PARKINSONISM
     Dosage: ORAL
     Route: 048
  3. MADOPARK QUICK (LEVODOPA/BENSERAZIDE HYDROCHLORIDE) [Suspect]
     Indication: PARKINSONISM
     Dosage: ORAL
     Route: 048
  4. SIFROL (PRAMIPEXOLE DIHYDROCHLORIDE) (1.1 MG) [Suspect]
     Indication: PARKINSONISM
     Dosage: ORAL
     Route: 048
  5. EFFEXOR [Concomitant]
  6. HYOSCYAMINE SULFATE [Concomitant]
  7. ORSTANORM [Concomitant]
  8. BETOLVEX [Concomitant]
  9. CLARITIN [Concomitant]
  10. TROMBYL [Concomitant]
  11. DETRUSITOL [Concomitant]

REACTIONS (4)
  - DYSPNOEA EXERTIONAL [None]
  - FATIGUE [None]
  - PLEURAL FIBROSIS [None]
  - WEIGHT DECREASED [None]
